FAERS Safety Report 9163758 (Version 4)
Quarter: 2013Q4

REPORT INFORMATION
  Report Type: Spontaneous
  Country: US (occurrence: US)
  Receive Date: 20130314
  Receipt Date: 20131217
  Transmission Date: 20140711
  Serious: Yes (Death, Hospitalization, Disabling, Other)
  Sender: FDA-Public Use
  Company Number: US-009507513-1203USA03650

PATIENT
  Sex: Female

DRUGS (2)
  1. FOSAMAX [Suspect]
     Indication: OSTEOPOROSIS
     Dosage: 10 MG, QD
     Route: 048
     Dates: start: 20010102, end: 2007
  2. FOSAMAX [Suspect]
     Indication: OSTEOPENIA
     Dosage: 70 MG, QW
     Route: 048
     Dates: start: 2001, end: 2007

REACTIONS (63)
  - Femur fracture [Not Recovered/Not Resolved]
  - Intramedullary rod insertion [Not Recovered/Not Resolved]
  - Fall [Unknown]
  - Wrist fracture [Unknown]
  - Closed fracture manipulation [Unknown]
  - Bone density decreased [Not Recovered/Not Resolved]
  - Osteoporosis [Not Recovered/Not Resolved]
  - Stress fracture [Not Recovered/Not Resolved]
  - Cardiac failure congestive [Unknown]
  - Sepsis [Fatal]
  - Nephrolithiasis [Fatal]
  - Hypovolaemia [Unknown]
  - Gastrointestinal haemorrhage [Unknown]
  - Anaemia [Unknown]
  - Transfusion [Unknown]
  - Myocardial infarction [Unknown]
  - Tracheostomy [Unknown]
  - Pulmonary embolism [Unknown]
  - Cholecystectomy [Unknown]
  - Colitis ischaemic [Unknown]
  - Cardiac arrest [Unknown]
  - Chronic obstructive pulmonary disease [Not Recovered/Not Resolved]
  - Atrial fibrillation [Unknown]
  - Coronary artery disease [Unknown]
  - Coronary arterial stent insertion [Unknown]
  - Hypertension [Unknown]
  - Hyperlipidaemia [Unknown]
  - Nephrolithiasis [Unknown]
  - Urethral stent insertion [Unknown]
  - Anxiety [Unknown]
  - Depression [Unknown]
  - Gingival disorder [Unknown]
  - Tooth loss [Unknown]
  - Gingivectomy [Unknown]
  - Periodontal operation [Unknown]
  - Endodontic procedure [Unknown]
  - Osteoarthritis [Unknown]
  - Urinary retention [Unknown]
  - Urinary tract infection [Unknown]
  - Hypothyroidism [Unknown]
  - Oral candidiasis [Unknown]
  - Fall [Unknown]
  - Emphysema [Unknown]
  - Anaemia [Unknown]
  - Hysterectomy [Unknown]
  - Arrhythmia [Unknown]
  - Oedema peripheral [Unknown]
  - Gastrooesophageal reflux disease [Unknown]
  - Asthma [Unknown]
  - Pleural effusion [Unknown]
  - Arteriosclerosis [Unknown]
  - Renal cyst [Unknown]
  - Atelectasis [Unknown]
  - Haematoma [Unknown]
  - Intervertebral disc degeneration [Unknown]
  - Clavicle fracture [Unknown]
  - Rib fracture [Unknown]
  - Rib fracture [Unknown]
  - Pubis fracture [Unknown]
  - Pubis fracture [Unknown]
  - Aortic dilatation [Unknown]
  - Fall [Unknown]
  - Arthralgia [Unknown]
